FAERS Safety Report 7301274-X (Version None)
Quarter: 2010Q4

REPORT INFORMATION
  Report Type: 
  Country: None (occurrence: None)
  Receive Date: 20101229
  Receipt Date: 20101029
  Transmission Date: 20110411
  Serious: No
  Sender: FDA-Public Use
  Company Number: 1000017107

PATIENT
  Age: 39 Year
  Sex: Female

DRUGS (6)
  1. BYSTOLIC [Suspect]
     Indication: HYPERTENSION
     Dosage: 5 MG (5 MG, 1 IN 1 D), ORAL
     Route: 048
     Dates: start: 20100917
  2. LEVOXYL (LEVOTHYROXINE SODIUM) (LEVOTHYROXINE SODIUM) [Concomitant]
  3. ENJUVIA (ESTROGENS CONJUGATED) (ESTROGENS CONJUGATED) [Concomitant]
  4. MVI (MVI) (MVI) [Concomitant]
  5. CALCIUM (CALCIUM) (CALCIUM) [Concomitant]
  6. VITAMIN D (VITAMIN D) (VITAMIN D) [Concomitant]

REACTIONS (2)
  - CONSTIPATION [None]
  - DYSPEPSIA [None]
